FAERS Safety Report 14498399 (Version 2)
Quarter: 2018Q3

REPORT INFORMATION
  Report Type: Spontaneous
  Country: GB (occurrence: GB)
  Receive Date: 20180207
  Receipt Date: 20180725
  Transmission Date: 20181010
  Serious: Yes (Life-Threatening, Hospitalization, Disabling)
  Sender: FDA-Public Use
  Company Number: GB-SA-2016SA195086

PATIENT
  Age: 22 Year
  Sex: Female
  Weight: 65 kg

DRUGS (11)
  1. HUMALOG [Suspect]
     Active Substance: INSULIN LISPRO
     Indication: TYPE 1 DIABETES MELLITUS
     Dosage: 32 IU,QD
     Route: 058
     Dates: start: 20090721
  2. LEVOTHYROXINE. [Concomitant]
     Active Substance: LEVOTHYROXINE
     Dosage: UNK UNK,UNK
     Dates: start: 20160108
  3. ACETYLSALICYLIC ACID [Concomitant]
     Active Substance: ASPIRIN
     Dosage: UNK UNK,UNK
     Route: 065
     Dates: start: 20160601
  4. DIAMORPHINE [Concomitant]
     Active Substance: DIAMORPHINE
     Dosage: UNK
     Dates: start: 20161123, end: 20161123
  5. HUMALOG [Suspect]
     Active Substance: INSULIN LISPRO
     Dosage: 64 IU,QD
     Route: 058
     Dates: start: 20161011
  6. LANTUS [Suspect]
     Active Substance: INSULIN GLARGINE
     Indication: TYPE 1 DIABETES MELLITUS
     Dosage: 22 IU,QD
     Route: 058
     Dates: start: 20150724
  7. PARACETAMOL [Concomitant]
     Active Substance: ACETAMINOPHEN
     Dosage: 1 G
     Dates: start: 20161119, end: 20161123
  8. RANITIDINE. [Concomitant]
     Active Substance: RANITIDINE
     Dosage: UNK
     Dates: start: 20161122, end: 20161123
  9. FOLIC ACID. [Concomitant]
     Active Substance: FOLIC ACID
     Dosage: UNK UNK,UNK
     Route: 065
     Dates: start: 20160422
  10. LANTUS [Suspect]
     Active Substance: INSULIN GLARGINE
     Dosage: UNK UNK,UNK
     Route: 058
  11. LANTUS [Suspect]
     Active Substance: INSULIN GLARGINE
     Dosage: 22 IU,QD
     Route: 058
     Dates: start: 20161011

REACTIONS (3)
  - Blood glucose abnormal [Not Recovered/Not Resolved]
  - Steroid therapy [Recovered/Resolved]
  - Exposure during pregnancy [Recovered/Resolved]

NARRATIVE: CASE EVENT DATE: 201602
